FAERS Safety Report 6063160-5 (Version None)
Quarter: 2009Q1

REPORT INFORMATION
  Report Type: 
  Country: None (occurrence: None)
  Receive Date: 20090203
  Receipt Date: 20090203
  Transmission Date: 20090719
  Serious: Yes (Hospitalization)
  Sender: FDA-Public Use
  Company Number: IT-WYE-G03051209

PATIENT
  Sex: Male

DRUGS (7)
  1. TAZOCIN [Suspect]
     Indication: ABDOMINAL ABSCESS
     Route: 042
     Dates: start: 20081223, end: 20090126
  2. OMEPRAZOLE [Concomitant]
     Dosage: 40 MG
     Route: 048
  3. CALCIUM CARBONATE [Concomitant]
     Dosage: 4 G
     Route: 048
  4. TRIAZOLAM [Concomitant]
     Dosage: 0.25 MG
     Route: 048
  5. CALCIUM LEVOFOLINATE [Concomitant]
     Dosage: 12.5 MG
     Route: 042
  6. CALCITRIOL [Concomitant]
     Dosage: 0.25 UG
     Route: 048
  7. EPOETIN ALFA [Concomitant]
     Dosage: 1000 IU
     Route: 042

REACTIONS (3)
  - LEUKOPENIA [None]
  - LYMPHOPENIA [None]
  - NEUTROPENIA [None]
